FAERS Safety Report 6829851-0 (Version None)
Quarter: 2010Q3

REPORT INFORMATION
  Report Type: 
  Country: None (occurrence: None)
  Receive Date: 20100710
  Receipt Date: 20100628
  Transmission Date: 20110219
  Serious: Yes (Hospitalization, Disabling, Other)
  Sender: FDA-Public Use
  Company Number: US-ELI_LILLY_AND_COMPANY-US201006007924

PATIENT
  Sex: Female

DRUGS (5)
  1. FORTEO [Suspect]
     Indication: OSTEOPOROSIS
     Dosage: 20 UG, 3/D
  2. CALCIUM CARBONATE [Concomitant]
  3. MAGNESIUM [Concomitant]
  4. CITRICAL [Concomitant]
  5. VITAMIN D [Concomitant]

REACTIONS (9)
  - ANAEMIA [None]
  - CONVULSION [None]
  - FIBROMYALGIA [None]
  - GAIT DISTURBANCE [None]
  - HOSPITALISATION [None]
  - ILL-DEFINED DISORDER [None]
  - OFF LABEL USE [None]
  - OSTEOPETROSIS [None]
  - OVERDOSE [None]
